FAERS Safety Report 8112788-7 (Version None)
Quarter: 2012Q1

REPORT INFORMATION
  Report Type: 
  Country: None (occurrence: None)
  Receive Date: 20120203
  Receipt Date: 20120130
  Transmission Date: 20120608
  Serious: Yes (Death, Hospitalization, Other)
  Sender: FDA-Public Use
  Company Number: RO-BRISTOL-MYERS SQUIBB COMPANY-16346504

PATIENT
  Age: 67 Year
  Sex: Female

DRUGS (2)
  1. METFORMIN HYDROCHLORIDE [Concomitant]
     Dosage: 2 TABS PER DAY
  2. YERVOY [Suspect]
     Indication: MALIGNANT MELANOMA STAGE IV
     Dosage: STRENGTH: 3MG/KG; SECOND DOSE INTERRUPTED.
     Route: 042
     Dates: start: 20111215

REACTIONS (11)
  - ASTHENIA [None]
  - BACK PAIN [None]
  - DECREASED APPETITE [None]
  - DEATH [None]
  - HEPATOTOXICITY [None]
  - ABDOMINAL PAIN UPPER [None]
  - THROMBOCYTOSIS [None]
  - NAUSEA [None]
  - LEUKOCYTOSIS [None]
  - VOMITING [None]
  - METASTASES TO LIVER [None]
